FAERS Safety Report 11030965 (Version 1)
Quarter: 2015Q2

REPORT INFORMATION
  Report Type: Spontaneous
  Country: US (occurrence: None)
  Receive Date: 20150414
  Receipt Date: 20150414
  Transmission Date: 20150821
  Serious: Yes (Other)
  Sender: FDA-Public Use
  Company Number: None

PATIENT
  Age: 59 Year
  Sex: Male
  Weight: 104.33 kg

DRUGS (5)
  1. CLOPIDOGREL [Concomitant]
     Active Substance: CLOPIDOGREL BISULFATE
  2. GABAPENTIN. [Suspect]
     Active Substance: GABAPENTIN
     Indication: PAIN
     Route: 048
     Dates: start: 20150309, end: 20150409
  3. SERTRALINE [Concomitant]
     Active Substance: SERTRALINE HYDROCHLORIDE
  4. SIMAVASTIN 80MG [Concomitant]
  5. TRAZODOLE HCL 50MG [Concomitant]

REACTIONS (6)
  - Irritability [None]
  - Dry mouth [None]
  - Depression [None]
  - Urine output decreased [None]
  - Dyspnoea [None]
  - Mental status changes [None]

NARRATIVE: CASE EVENT DATE: 20150412
